FAERS Safety Report 16418269 (Version 2)
Quarter: 2019Q3

REPORT INFORMATION
  Report Type: Spontaneous
  Country: CA (occurrence: CA)
  Receive Date: 20190612
  Receipt Date: 20190907
  Transmission Date: 20191004
  Serious: Yes (Other)
  Sender: FDA-Public Use
  Company Number: CA-AUROBINDO-AUR-APL-2019-031710

PATIENT

DRUGS (14)
  1. RASILEZ [Suspect]
     Active Substance: ALISKIREN
     Indication: FOCAL SEGMENTAL GLOMERULOSCLEROSIS
     Dosage: 37.5 MILLIGRAM, ONCE A DAY
     Route: 065
  2. RASILEZ [Suspect]
     Active Substance: ALISKIREN
     Dosage: 4.2 MILLIGRAM/KILOGRAM, ONCE A DAY
     Route: 065
  3. RITUXAN [Suspect]
     Active Substance: RITUXIMAB
     Indication: PRODUCT USED FOR UNKNOWN INDICATION
     Dosage: UNK
     Route: 065
  4. SIMVASTATIN. [Concomitant]
     Active Substance: SIMVASTATIN
     Indication: PRODUCT USED FOR UNKNOWN INDICATION
     Dosage: UNK
     Route: 065
  5. RAMIPRIL. [Suspect]
     Active Substance: RAMIPRIL
     Indication: FOCAL SEGMENTAL GLOMERULOSCLEROSIS
     Dosage: 0.6 MILLIGRAM/KILOGRAM, ONCE A DAY
     Route: 065
  6. RASILEZ [Suspect]
     Active Substance: ALISKIREN
     Dosage: 4.2 MILLIGRAM/KILOGRAM
     Route: 065
  7. RAMIPRIL. [Suspect]
     Active Substance: RAMIPRIL
     Dosage: 0.8 MILLIGRAM/KILOGRAM, ONCE A DAY
     Route: 065
  8. RITUXAN [Suspect]
     Active Substance: RITUXIMAB
     Dosage: 375 MILLIGRAM/SQ. METER
     Route: 042
  9. RASILEZ [Suspect]
     Active Substance: ALISKIREN
     Indication: FOCAL SEGMENTAL GLOMERULOSCLEROSIS
     Dosage: 75 MILLIGRAM, ONCE A DAY
     Route: 065
  10. COZAAR [Suspect]
     Active Substance: LOSARTAN POTASSIUM
     Indication: PRODUCT USED FOR UNKNOWN INDICATION
     Dosage: 0.7 MILLIGRAM/KILOGRAM, ONCE A DAY
     Route: 065
  11. TACROLIMUS. [Concomitant]
     Active Substance: TACROLIMUS
     Indication: PRODUCT USED FOR UNKNOWN INDICATION
     Dosage: UNK
     Route: 065
  12. LOSARTAN TABLETS [Suspect]
     Active Substance: LOSARTAN
     Indication: FOCAL SEGMENTAL GLOMERULOSCLEROSIS
     Dosage: 0.7 MILLIGRAM/KILOGRAM, ONCE A DAY
     Route: 065
  13. RASILEZ [Suspect]
     Active Substance: ALISKIREN
     Dosage: 75 MILLIGRAM, ONCE A DAY
     Route: 065
  14. RASILEZ [Suspect]
     Active Substance: ALISKIREN
     Dosage: 2.1 MILLIGRAM/KILOGRAM, ONCE A DAY
     Route: 065

REACTIONS (2)
  - Blood creatinine increased [Unknown]
  - Hyperkalaemia [Unknown]
